FAERS Safety Report 4647949-2 (Version None)
Quarter: 2005Q2

REPORT INFORMATION
  Report Type: 
  Country: None (occurrence: None)
  Receive Date: 20050428
  Receipt Date: 20050418
  Transmission Date: 20051028
  Serious: Yes (Hospitalization)
  Sender: FDA-Public Use
  Company Number: DE-ABBOTT-05P-062-0297942-00

PATIENT
  Sex: Male
  Weight: 61 kg

DRUGS (5)
  1. KLACID [Suspect]
     Indication: SUICIDE ATTEMPT
     Route: 048
     Dates: start: 20050418, end: 20050418
  2. DICLOFENAC SODIUM [Suspect]
     Indication: SUICIDE ATTEMPT
     Route: 048
     Dates: start: 20050418, end: 20050418
  3. METAMIZOLE SODIUM [Suspect]
     Indication: SUICIDE ATTEMPT
     Route: 048
     Dates: start: 20050418, end: 20050418
  4. MYRTOL [Suspect]
     Indication: SUICIDE ATTEMPT
     Route: 048
     Dates: start: 20050418, end: 20050418
  5. LOPERAMIDE HCL [Suspect]
     Indication: SUICIDE ATTEMPT
     Route: 048
     Dates: start: 20050418, end: 20050418

REACTIONS (4)
  - DYSPEPSIA [None]
  - FATIGUE [None]
  - OVERDOSE [None]
  - SUICIDE ATTEMPT [None]
